FAERS Safety Report 8369926-0 (Version None)
Quarter: 2012Q2

REPORT INFORMATION
  Report Type: 
  Country: None (occurrence: None)
  Receive Date: 20120518
  Receipt Date: 20120514
  Transmission Date: 20120825
  Serious: Yes (Hospitalization, Other)
  Sender: FDA-Public Use
  Company Number: CA-AMGEN-CANSP2012015174

PATIENT
  Age: 70 Year
  Sex: Female
  Weight: 73.469 kg

DRUGS (14)
  1. ENBREL [Suspect]
     Dosage: 50 MG, QWK
     Dates: start: 20041007
  2. PANTOPRAZOLE SODIUM [Concomitant]
     Dosage: 40 MG, QD
  3. ENBREL [Suspect]
     Indication: RHEUMATOID ARTHRITIS
     Dosage: 50 MG, QWK
     Route: 058
     Dates: start: 20041001, end: 20120109
  4. OXYCODONE HCL [Concomitant]
     Dosage: 10 MG, UNK
  5. MIRAPEX [Concomitant]
     Dosage: 0.25 MG, QHS
  6. NOVO-TRIPTYN [Concomitant]
     Dosage: 10 MG, QHS
  7. CALCIUM CARBONATE [Concomitant]
     Dosage: 500 MG, TID
  8. PROLIA [Concomitant]
     Dosage: 60 MG, Q6MO
     Route: 058
  9. METHOTREXATE [Concomitant]
     Dosage: 12.5 MG, QWK
  10. CELEXA [Concomitant]
     Dosage: 40 MG, UNK
  11. FOLIC ACID [Concomitant]
     Dosage: 5 MG, QD
  12. CYTOTEC [Concomitant]
     Dosage: 200 MUG, BID
  13. VITAMIN D [Concomitant]
     Dosage: 1000 IU, QD
  14. QUETIAPINE [Concomitant]
     Dosage: 25 MG, UNK

REACTIONS (3)
  - FALL [None]
  - METASTATIC NEOPLASM [None]
  - HIP FRACTURE [None]
